FAERS Safety Report 7530062-4 (Version None)
Quarter: 2011Q2

REPORT INFORMATION
  Report Type: 
  Country: None (occurrence: None)
  Receive Date: 20110607
  Receipt Date: 20100816
  Transmission Date: 20111010
  Serious: Yes (Death)
  Sender: FDA-Public Use
  Company Number: US-BAYER-201029543NA

PATIENT
  Sex: Male

DRUGS (1)
  1. MIRENA [Suspect]
     Dosage: UNK
     Dates: start: 20060101, end: 20080101

REACTIONS (1)
  - DEATH [None]
